FAERS Safety Report 20904894 (Version 3)
Quarter: 2022Q2

REPORT INFORMATION
  Report Type: Spontaneous
  Country: IT (occurrence: IT)
  Receive Date: 20220602
  Receipt Date: 20220624
  Transmission Date: 20220720
  Serious: Yes (Death, Other)
  Sender: FDA-Public Use
  Company Number: None

PATIENT
  Age: 63 Year
  Sex: Male

DRUGS (2)
  1. ABILIFY [Interacting]
     Active Substance: ARIPIPRAZOLE
     Indication: Schizophrenia
     Dosage: 10 MG, QD
     Route: 048
     Dates: end: 20220514
  2. OXCARBAZEPINE [Interacting]
     Active Substance: OXCARBAZEPINE
     Indication: Epilepsy
     Dosage: 900 MG, QD
     Route: 048
     Dates: end: 20220514

REACTIONS (1)
  - Completed suicide [Fatal]

NARRATIVE: CASE EVENT DATE: 20220514
